FAERS Safety Report 8175713-9 (Version None)
Quarter: 2012Q1

REPORT INFORMATION
  Report Type: 
  Country: None (occurrence: None)
  Receive Date: 20120301
  Receipt Date: 20120220
  Transmission Date: 20120608
  Serious: Yes (Other)
  Sender: FDA-Public Use
  Company Number: US-AMGEN-USASP2012011174

PATIENT
  Age: 47 Year
  Sex: Female

DRUGS (1)
  1. ENBREL [Suspect]
     Indication: PSORIATIC ARTHROPATHY
     Dosage: 50 MG, 2 TIMES/WK
     Dates: start: 20060331

REACTIONS (8)
  - HEPATIC STEATOSIS [None]
  - ALOPECIA [None]
  - WEIGHT DECREASED [None]
  - HAIR DISORDER [None]
  - NODAL OSTEOARTHRITIS [None]
  - DRUG INEFFECTIVE [None]
  - PERNICIOUS ANAEMIA [None]
  - PAIN [None]
